FAERS Safety Report 6842701-1 (Version None)
Quarter: 2010Q3

REPORT INFORMATION
  Report Type: 
  Country: None (occurrence: None)
  Receive Date: 20100714
  Receipt Date: 20070807
  Transmission Date: 20110219
  Serious: No
  Sender: FDA-Public Use
  Company Number: US-PFIZER INC-2007065617

PATIENT
  Sex: Male
  Weight: 61.7 kg

DRUGS (16)
  1. CHANTIX [Suspect]
     Indication: SMOKING CESSATION THERAPY
     Dates: start: 20070803, end: 20070805
  2. FOLIC ACID [Concomitant]
  3. TENORMIN [Concomitant]
  4. ATIVAN [Concomitant]
  5. PROTONIX [Concomitant]
  6. ACETYLSALICYLIC ACID [Concomitant]
  7. SYNTHROID [Concomitant]
  8. LISINOPRIL [Concomitant]
  9. GLUCOPHAGE [Concomitant]
  10. XELODA [Concomitant]
     Dosage: 5 EVERY 1 DAYS
  11. ELAVIL [Concomitant]
  12. GINSENG [Concomitant]
  13. CRANBERRY [Concomitant]
  14. VITAMIN A [Concomitant]
  15. VITAMIN E [Concomitant]
  16. GARLIC [Concomitant]

REACTIONS (4)
  - DEPRESSION [None]
  - DISCOMFORT [None]
  - MIDDLE INSOMNIA [None]
  - PRURITUS [None]
